FAERS Safety Report 21743896 (Version 1)
Quarter: 2022Q4

REPORT INFORMATION
  Report Type: Spontaneous
  Country: IT (occurrence: IT)
  Receive Date: 20221217
  Receipt Date: 20221217
  Transmission Date: 20230112
  Serious: Yes (Other)
  Sender: FDA-Public Use
  Company Number: IT-002147023-NVSC2022IT290099

PATIENT
  Age: 87 Year
  Sex: Male

DRUGS (2)
  1. PAZOPANIB [Suspect]
     Active Substance: PAZOPANIB
     Indication: Product used for unknown indication
     Dosage: 600 MG, QD
     Route: 065
     Dates: start: 20220218
  2. PAZOPANIB [Suspect]
     Active Substance: PAZOPANIB
     Dosage: 400 MG, QD
     Route: 065
     Dates: end: 202210

REACTIONS (7)
  - Performance status decreased [Recovering/Resolving]
  - Disease progression [Unknown]
  - Oral disorder [Unknown]
  - Loss of personal independence in daily activities [Recovering/Resolving]
  - Asthenia [Recovering/Resolving]
  - Decreased appetite [Recovering/Resolving]
  - Weight decreased [Recovering/Resolving]

NARRATIVE: CASE EVENT DATE: 20221001
